FAERS Safety Report 4591844-4 (Version None)
Quarter: 2005Q1

REPORT INFORMATION
  Report Type: 
  Country: None (occurrence: None)
  Receive Date: 20050222
  Receipt Date: 20050209
  Transmission Date: 20050727
  Serious: Yes (Other)
  Sender: FDA-Public Use
  Company Number: HQWYE366816FEB05

PATIENT
  Age: 40 Year
  Sex: Female
  Weight: 79.45 kg

DRUGS (3)
  1. ADVIL [Suspect]
     Indication: PAIN
     Dosage: 2 LIQUI-GELS ONCE, ORAL
     Route: 048
     Dates: start: 20050208, end: 20050208
  2. AMITRIPTYLINE HCL [Concomitant]
  3. ROBINUL [Concomitant]

REACTIONS (1)
  - HYPERSENSITIVITY [None]
